FAERS Safety Report 6786641-5 (Version None)
Quarter: 2010Q2

REPORT INFORMATION
  Report Type: 
  Country: None (occurrence: None)
  Receive Date: 20100623
  Receipt Date: 20100618
  Transmission Date: 20101027
  Serious: Yes (Hospitalization)
  Sender: FDA-Public Use
  Company Number: US-BRISTOL-MYERS SQUIBB COMPANY-15157464

PATIENT
  Age: 40 Year
  Sex: Male
  Weight: 161 kg

DRUGS (9)
  1. ARIPIPRAZOLE [Suspect]
     Indication: SCHIZOPHRENIA
     Dosage: 10MG ORAL FROM 10OCT09-UNKNOWN.DOSE INCREASED TO 20MG
     Route: 048
     Dates: start: 20091008, end: 20091011
  2. HYDROCHLOROTHIAZIDE [Concomitant]
     Dates: start: 20090406
  3. METOPROLOL TARTRATE [Concomitant]
  4. NEXIUM [Concomitant]
  5. POLYSACCHARIDE + IRON [Concomitant]
     Dates: start: 20090701
  6. ZOLOFT [Concomitant]
     Dates: start: 20090519
  7. OLANZAPINE [Concomitant]
     Indication: AGITATION
     Dosage: 10MGIM EVERY12HOURSAS NEEDED.15MGORAL ON12+13OCT09.ADDITIONAL10MG ON 12OCT09.LAST RECEIVED ON 4OCT09
     Route: 048
     Dates: start: 20090326, end: 20091027
  8. CALCIUM CARBONATE [Concomitant]
     Dates: start: 20091009, end: 20091027
  9. RESTORIL [Concomitant]
     Dosage: AT BED TIME
     Dates: start: 20091010, end: 20091027

REACTIONS (2)
  - CONDITION AGGRAVATED [None]
  - SCHIZOPHRENIA [None]
